FAERS Safety Report 17281953 (Version 1)
Quarter: 2020Q1

REPORT INFORMATION
  Report Type: Spontaneous
  Country: DK (occurrence: DK)
  Receive Date: 20200117
  Receipt Date: 20200117
  Transmission Date: 20200409
  Serious: Yes (Disabling)
  Sender: FDA-Public Use
  Company Number: DK-TEVA-2020-DK-1168568

PATIENT
  Age: 46 Year
  Sex: Female

DRUGS (2)
  1. ACLASTA [Suspect]
     Active Substance: ZOLEDRONIC ACID
     Indication: OSTEOPOROSIS
     Dosage: STRENGTH: 5 MG / 100 ML , 5 MG 1 YEARS
     Route: 042
     Dates: start: 20170321
  2. ALENDRONAT [Suspect]
     Active Substance: ALENDRONATE SODIUM
     Indication: OSTEOPOROSIS
     Dosage: STRENGTH: 70 MG , 70 MG 1 WEEKS
     Route: 048
     Dates: start: 2006

REACTIONS (5)
  - Dental fistula [Not Recovered/Not Resolved]
  - Purulence [Not Recovered/Not Resolved]
  - Exposed bone in jaw [Not Recovered/Not Resolved]
  - Oral pain [Not Recovered/Not Resolved]
  - Osteonecrosis of jaw [Not Recovered/Not Resolved]

NARRATIVE: CASE EVENT DATE: 201212
